FAERS Safety Report 7320638-1 (Version None)
Quarter: 2011Q1

REPORT INFORMATION
  Report Type: 
  Country: None (occurrence: None)
  Receive Date: 20110223
  Receipt Date: 20110223
  Transmission Date: 20110831
  Serious: Yes (Death)
  Sender: FDA-Public Use
  Company Number: None

PATIENT
  Sex: Male
  Weight: 72.5755 kg

DRUGS (1)
  1. AVASTIN [Suspect]

REACTIONS (5)
  - CHOKING [None]
  - EMOTIONAL DISORDER [None]
  - COUGH [None]
  - ODYNOPHAGIA [None]
  - HAEMORRHAGE [None]
